FAERS Safety Report 6093701-3 (Version None)
Quarter: 2009Q1

REPORT INFORMATION
  Report Type: 
  Country: None (occurrence: None)
  Receive Date: 20090223
  Receipt Date: 20090223
  Transmission Date: 20090719
  Serious: Yes (Hospitalization)
  Sender: FDA-Public Use
  Company Number: None

PATIENT
  Age: 64 Year
  Sex: Male
  Weight: 79.3795 kg

DRUGS (1)
  1. VITAMIN D [Suspect]
     Indication: VITAMIN D DECREASED
     Dosage: 1 CAPSULE 1 PER DAY PO (ONSET AFTER 2ND CAPSULE)
     Route: 048
     Dates: start: 20070927, end: 20071004

REACTIONS (2)
  - BLOOD TEST ABNORMAL [None]
  - PAIN IN EXTREMITY [None]
